FAERS Safety Report 9121124 (Version 2)
Quarter: 2013Q2

REPORT INFORMATION
  Report Type: Spontaneous
  Country: BR (occurrence: BR)
  Receive Date: 20130226
  Receipt Date: 20130520
  Transmission Date: 20140414
  Serious: Yes (Hospitalization)
  Sender: FDA-Public Use
  Company Number: BR-PFIZER INC-2013035999

PATIENT
  Age: 45 Year
  Sex: Female
  Weight: 105 kg

DRUGS (7)
  1. LYRICA [Suspect]
     Indication: DRUG DEPENDENCE
     Dosage: 150 MG, 5X/DAY
     Route: 048
     Dates: start: 20121031
  2. LAMOTRIGINE [Concomitant]
  3. SEROQUEL [Concomitant]
  4. MIRTAZAPINE [Concomitant]
  5. DONAREN [Concomitant]
  6. TOPIRAMATE [Concomitant]
  7. GABAPENTIN [Concomitant]

REACTIONS (4)
  - Alcohol abuse [Recovering/Resolving]
  - Drug abuse [Recovering/Resolving]
  - Off label use [Unknown]
  - Prescribed overdose [Unknown]
